FAERS Safety Report 7476190-3 (Version None)
Quarter: 2011Q2

REPORT INFORMATION
  Report Type: 
  Country: None (occurrence: None)
  Receive Date: 20110512
  Receipt Date: 20110502
  Transmission Date: 20111010
  Serious: Yes (Other)
  Sender: FDA-Public Use
  Company Number: US-WATSON-2011-06497

PATIENT
  Age: 58 Year
  Sex: Male

DRUGS (2)
  1. KETAMINE HCL [Suspect]
     Indication: NEUROSURGERY
     Dosage: UNK
  2. GABAPENTIN [Suspect]
     Indication: NEUROSURGERY
     Dosage: UNK

REACTIONS (2)
  - DRUG INTERACTION [None]
  - DEPRESSED LEVEL OF CONSCIOUSNESS [None]
